FAERS Safety Report 20313013 (Version 1)
Quarter: 2022Q1

REPORT INFORMATION
  Report Type: Spontaneous
  Country: US (occurrence: US)
  Receive Date: 20220109
  Receipt Date: 20220109
  Transmission Date: 20220423
  Serious: Yes (Other)
  Sender: FDA-Public Use
  Company Number: US-AUROBINDO-AUR-APL-2022-000073

PATIENT
  Sex: Female

DRUGS (4)
  1. FULVESTRANT [Suspect]
     Active Substance: FULVESTRANT
     Indication: Breast cancer
     Dosage: UNK
     Route: 065
  2. ALPELISIB [Suspect]
     Active Substance: ALPELISIB
     Indication: Breast cancer
     Dosage: 300 MILLIGRAM
     Route: 065
  3. ALPELISIB [Suspect]
     Active Substance: ALPELISIB
     Dosage: 150 MILLIGRAM, DAILY
     Route: 065
  4. ALPELISIB [Suspect]
     Active Substance: ALPELISIB
     Dosage: 200 MILLIGRAM, DAILY
     Route: 065

REACTIONS (1)
  - Hyperglycaemia [Unknown]
